FAERS Safety Report 4543090-8 (Version None)
Quarter: 2004Q4

REPORT INFORMATION
  Report Type: 
  Country: None (occurrence: None)
  Receive Date: 20041229
  Receipt Date: 20041216
  Transmission Date: 20050328
  Serious: Yes (Other)
  Sender: FDA-Public Use
  Company Number: FI-2004-036955

PATIENT
  Sex: Female

DRUGS (1)
  1. MIRENA [Suspect]
     Dosage: 20 UG/DAY, CONT, INTRA-UTERINE
     Route: 015
     Dates: start: 20021001

REACTIONS (6)
  - DRUG EXPOSURE DURING PREGNANCY [None]
  - FOETAL HEART RATE ABNORMAL [None]
  - OLIGOMENORRHOEA [None]
  - PREGNANCY WITH CONTRACEPTIVE DEVICE [None]
  - UNINTENDED PREGNANCY [None]
  - VAGINAL HAEMORRHAGE [None]
